FAERS Safety Report 4414036-8 (Version None)
Quarter: 2004Q3

REPORT INFORMATION
  Report Type: 
  Country: None (occurrence: None)
  Receive Date: 20040803
  Receipt Date: 20040303
  Transmission Date: 20050211
  Serious: Yes (Hospitalization)
  Sender: FDA-Public Use
  Company Number: JP-GLAXOSMITHKLINE-B0325656A

PATIENT
  Age: 19 Year
  Sex: Male

DRUGS (10)
  1. LAMIVUDINE [Suspect]
     Indication: HIV INFECTION
     Dosage: 300MG PER DAY
     Route: 048
     Dates: start: 20000628, end: 20020920
  2. LAMIVUDINE [Suspect]
     Indication: ACQUIRED IMMUNODEFICIENCY SYNDROME
     Dosage: 300MG PER DAY
     Route: 048
     Dates: start: 20030227
  3. STAVUDINE [Suspect]
     Indication: HIV INFECTION
     Route: 048
     Dates: start: 19990902, end: 20020920
  4. EFAVIRENZ [Suspect]
     Indication: ACQUIRED IMMUNODEFICIENCY SYNDROME
     Route: 048
     Dates: start: 20001114, end: 20020920
  5. EFAVIRENZ [Suspect]
     Route: 048
     Dates: start: 20030313
  6. SAQUINAVIR [Concomitant]
     Indication: ACQUIRED IMMUNODEFICIENCY SYNDROME
     Route: 048
     Dates: start: 20030227, end: 20030312
  7. RITONAVIR [Concomitant]
     Indication: HIV INFECTION
     Route: 048
     Dates: start: 20030227, end: 20030312
  8. CAMOSTAT MESILATE [Concomitant]
     Indication: PANCREATITIS HAEMORRHAGIC
     Dosage: 200MG THREE TIMES PER DAY
     Route: 048
     Dates: start: 20020401
  9. FACTOR IX COMPLEX [Concomitant]
     Indication: FACTOR IX DEFICIENCY
     Dosage: 1000IU THREE TIMES PER WEEK
     Route: 042
     Dates: start: 20020401
  10. ZIDOVUDINE [Concomitant]
     Indication: ACQUIRED IMMUNODEFICIENCY SYNDROME
     Route: 048
     Dates: start: 20030227

REACTIONS (4)
  - BLOOD CHOLESTEROL INCREASED [None]
  - BLOOD TRIGLYCERIDES INCREASED [None]
  - DIABETES MELLITUS INSULIN-DEPENDENT [None]
  - HYPERLIPIDAEMIA [None]
